FAERS Safety Report 11928091 (Version 4)
Quarter: 2016Q1

REPORT INFORMATION
  Report Type: Spontaneous
  Country: IT (occurrence: IT)
  Receive Date: 20160119
  Receipt Date: 20160324
  Transmission Date: 20160526
  Serious: Yes (Hospitalization, Other)
  Sender: FDA-Public Use
  Company Number: IT-GILEAD-2016-0193386

PATIENT
  Age: 54 Year
  Sex: Male
  Weight: 55 kg

DRUGS (3)
  1. ATRIPLA [Suspect]
     Active Substance: EFAVIRENZ\EMTRICITABINE\TENOFOVIR DISOPROXIL FUMARATE
     Indication: HIV INFECTION
     Dosage: 1 DF, UNK
     Route: 048
     Dates: start: 20150226, end: 20160112
  2. OKI [Concomitant]
     Active Substance: KETOPROFEN LYSINE
     Indication: MYALGIA
     Dosage: UNK
     Dates: start: 20150101, end: 20160112
  3. CRESTOR [Concomitant]
     Active Substance: ROSUVASTATIN CALCIUM
     Indication: DYSLIPIDAEMIA
     Dosage: UNK
     Dates: start: 20080101, end: 20160112

REACTIONS (9)
  - Fanconi syndrome acquired [Unknown]
  - Proteinuria [Recovering/Resolving]
  - Acute kidney injury [Recovering/Resolving]
  - Glycosuria [Recovering/Resolving]
  - Pain [Unknown]
  - Polyuria [Unknown]
  - Hyponatraemia [Recovering/Resolving]
  - Hypophosphataemia [Recovering/Resolving]
  - Polydipsia [Unknown]

NARRATIVE: CASE EVENT DATE: 20160112
